FAERS Safety Report 4708471-8 (Version None)
Quarter: 2005Q3

REPORT INFORMATION
  Report Type: 
  Country: None (occurrence: None)
  Receive Date: 20050705
  Receipt Date: 20050627
  Transmission Date: 20060218
  Serious: Yes (Other)
  Sender: FDA-Public Use
  Company Number: NLWYE737713JUN05

PATIENT
  Age: 55 Year
  Sex: Male

DRUGS (3)
  1. EFFEXOR [Suspect]
     Indication: DEPRESSION
     Dosage: ORAL
     Route: 048
     Dates: start: 20030901, end: 20040601
  2. ZOLOFT [Suspect]
     Dosage: 100 MG 2X PER 1 DAY ORAL
     Route: 048
     Dates: start: 20040701, end: 20050601
  3. IMOVANE (ZOPICLONE) [Concomitant]

REACTIONS (4)
  - OPTIC ATROPHY [None]
  - VISUAL EVOKED POTENTIALS ABNORMAL [None]
  - VISUAL FIELD DEFECT [None]
  - VISUAL PATHWAY DISORDER [None]
